FAERS Safety Report 15823627 (Version 5)
Quarter: 2019Q2

REPORT INFORMATION
  Report Type: Spontaneous
  Country: US (occurrence: US)
  Receive Date: 20190114
  Receipt Date: 20190606
  Transmission Date: 20190711
  Serious: Yes (Hospitalization)
  Sender: FDA-Public Use
  Company Number: US-ACTELION-A-US2019-184841

PATIENT
  Age: 39 Year
  Sex: Female
  Weight: 81.63 kg

DRUGS (1)
  1. TRACLEER [Suspect]
     Active Substance: BOSENTAN
     Indication: PULMONARY HYPERTENSION
     Dosage: 125 MG, BID
     Route: 048

REACTIONS (4)
  - Hospitalisation [Unknown]
  - Pain [Unknown]
  - Sickle cell anaemia [Unknown]
  - Swelling [Unknown]

NARRATIVE: CASE EVENT DATE: 20181230
